FAERS Safety Report 15849439 (Version 1)
Quarter: 2019Q1

REPORT INFORMATION
  Report Type: Spontaneous
  Country: US (occurrence: US)
  Receive Date: 20190121
  Receipt Date: 20190121
  Transmission Date: 20190417
  Serious: No
  Sender: FDA-Public Use
  Company Number: US-LYNE LABORATORIES INC.-2061512

PATIENT
  Age: 49 Year
  Sex: Female
  Weight: 67.27 kg

DRUGS (1)
  1. CHLORHEXIDINE GLUCONATE. [Suspect]
     Active Substance: CHLORHEXIDINE GLUCONATE
     Indication: DENTAL DISORDER PROPHYLAXIS
     Route: 048
     Dates: start: 201805

REACTIONS (3)
  - Laryngeal oedema [Recovered/Resolved]
  - Product complaint [None]
  - Stridor [Recovered/Resolved]
